FAERS Safety Report 18627754 (Version 2)
Quarter: 2020Q4

REPORT INFORMATION
  Report Type: Report from Study
  Country: BE (occurrence: BE)
  Receive Date: 20201217
  Receipt Date: 20201222
  Transmission Date: 20210114
  Serious: No
  Sender: FDA-Public Use
  Company Number: BE-PFIZER INC-2020486689

PATIENT
  Age: 73 Year
  Sex: Male
  Weight: 78 kg

DRUGS (4)
  1. ZYPREXA [Concomitant]
     Active Substance: OLANZAPINE
     Indication: BURNOUT SYNDROME
     Dosage: 2.5 MG (1 TABLET), 1X/DAY
     Route: 048
     Dates: start: 2005
  2. FORLAX [Concomitant]
     Active Substance: POLYETHYLENE GLYCOL 4000
     Indication: CONSTIPATION
     Dosage: 10 G (1 BAG), 1X/DAY
     Route: 048
     Dates: start: 20190102
  3. VYNDAQEL [Suspect]
     Active Substance: TAFAMIDIS MEGLUMINE
     Indication: CARDIAC AMYLOIDOSIS
     Dosage: 61 MG (1 CAPSULE), 1X/DAY
     Route: 048
     Dates: start: 20201121
  4. ZOLPIDEM [Concomitant]
     Active Substance: ZOLPIDEM TARTRATE
     Indication: BURNOUT SYNDROME
     Dosage: 10 MG (1 TABLET), 1X/DAY
     Route: 048
     Dates: start: 2005

REACTIONS (1)
  - Abdominal pain upper [Recovered/Resolved]

NARRATIVE: CASE EVENT DATE: 20201208
